FAERS Safety Report 9660964 (Version 2)
Quarter: 2013Q4

REPORT INFORMATION
  Report Type: Spontaneous
  Country: BR (occurrence: BR)
  Receive Date: 20131031
  Receipt Date: 20131129
  Transmission Date: 20140711
  Serious: Yes (Other)
  Sender: FDA-Public Use
  Company Number: BR-NOVOPROD-390871

PATIENT
  Age: 71 Year
  Sex: Male
  Weight: 57 kg

DRUGS (11)
  1. LEVEMIR FLEXPEN [Suspect]
     Indication: TYPE 2 DIABETES MELLITUS
     Dosage: UNK (INJECTING ONCE A DAY)
     Route: 065
  2. LEVEMIR FLEXPEN [Suspect]
     Dosage: 10 U MORNING 10 UIAFTERNOON 20 U NIGHT
     Route: 065
  3. ACETYLSALICYLIC ACID [Concomitant]
     Indication: CARDIAC DISORDER
     Dosage: 1 TAB
     Route: 048
  4. FRESH TEARS                        /00007002/ [Concomitant]
     Indication: GLAUCOMA
     Dosage: 2 DROPS (COLIRIUM)
  5. GLIMEPIRIDE [Concomitant]
     Indication: TYPE 2 DIABETES MELLITUS
     Dosage: 2 TAB (2MG)
     Route: 048
  6. COMBIGAN [Concomitant]
     Indication: GLAUCOMA
     Dosage: 1 DROP
  7. CLOPIDOGREL [Concomitant]
     Indication: CARDIAC DISORDER
     Dosage: 1 TAB (65 MG)
     Route: 048
  8. ATORVASTATIN [Concomitant]
     Indication: BLOOD CHOLESTEROL ABNORMAL
     Dosage: 1 TAB (10 MG)
     Route: 048
  9. AZOPT [Concomitant]
     Indication: GLAUCOMA
     Dosage: 2 DROPS
  10. LISINOPRIL [Concomitant]
     Indication: HYPERTENSION
     Dosage: ONLY WHEN PRESENTING HIGH BLOOD GLUCOSE LEVEL
     Route: 048
  11. LUMIGAN [Concomitant]
     Indication: GLAUCOMA
     Dosage: 2 DROPS

REACTIONS (3)
  - Gastrointestinal carcinoma [Recovered/Resolved]
  - Metastases to liver [Recovered/Resolved]
  - Blood glucose increased [Recovered/Resolved]
